FAERS Safety Report 8112282-3 (Version None)
Quarter: 2012Q1

REPORT INFORMATION
  Report Type: 
  Country: None (occurrence: None)
  Receive Date: 20120203
  Receipt Date: 20120203
  Transmission Date: 20120608
  Serious: Yes (Other)
  Sender: FDA-Public Use
  Company Number: None

PATIENT
  Sex: Female
  Weight: 52.163 kg

DRUGS (2)
  1. TAMOXIFEN CITRATE [Concomitant]
     Indication: NEOPLASM MALIGNANT
     Dates: start: 20100703, end: 20111224
  2. PROMETHAZINE [Suspect]
     Indication: NAUSEA
     Route: 048
     Dates: start: 20110301, end: 20111224

REACTIONS (14)
  - PRURITUS [None]
  - FEAR [None]
  - TINNITUS [None]
  - CONVULSION [None]
  - SWELLING FACE [None]
  - JOINT SWELLING [None]
  - COMPLETED SUICIDE [None]
  - SOMNOLENCE [None]
  - HALLUCINATIONS, MIXED [None]
  - NIGHTMARE [None]
  - SWELLING [None]
  - VOMITING [None]
  - CONFUSIONAL STATE [None]
  - COORDINATION ABNORMAL [None]
